FAERS Safety Report 8027274-2 (Version None)
Quarter: 2012Q1

REPORT INFORMATION
  Report Type: 
  Country: None (occurrence: None)
  Receive Date: 20120106
  Receipt Date: 20120106
  Transmission Date: 20120608
  Serious: Yes (Other)
  Sender: FDA-Public Use
  Company Number: CL-JNJFOC-20120100678

PATIENT
  Age: 65 Year
  Sex: Female

DRUGS (1)
  1. TRAMADOL HCL [Suspect]
     Indication: PRODUCT USED FOR UNKNOWN INDICATION
     Route: 048
     Dates: start: 20111123, end: 20111123

REACTIONS (6)
  - HYPERTENSIVE CRISIS [None]
  - MALAISE [None]
  - NAUSEA [None]
  - DIZZINESS [None]
  - DYSPNOEA [None]
  - TACHYCARDIA [None]
